FAERS Safety Report 5463240-9 (Version None)
Quarter: 2007Q3

REPORT INFORMATION
  Report Type: 
  Country: None (occurrence: None)
  Receive Date: 20070920
  Receipt Date: 20070914
  Transmission Date: 20080115
  Serious: Yes (Hospitalization)
  Sender: FDA-Public Use
  Company Number: GB-MERCK-0708GBR00107

PATIENT
  Age: 77 Year
  Sex: Female

DRUGS (3)
  1. TIMOPTIC [Suspect]
     Indication: GLAUCOMA
     Route: 047
     Dates: start: 20061025, end: 20061030
  2. BIMATOPROST [Suspect]
     Indication: GLAUCOMA
     Route: 047
     Dates: start: 20061025, end: 20061030
  3. BRIMONIDINE TARTRATE [Concomitant]
     Route: 047

REACTIONS (4)
  - BLEPHARITIS [None]
  - CONJUNCTIVAL HYPERAEMIA [None]
  - DISORIENTATION [None]
  - VISUAL FIELD DEFECT [None]
